FAERS Safety Report 22185846 (Version 1)
Quarter: 2023Q2

REPORT INFORMATION
  Report Type: Spontaneous
  Country: US (occurrence: None)
  Receive Date: 20230406
  Receipt Date: 20230406
  Transmission Date: 20230722
  Serious: No
  Sender: FDA-Public Use
  Company Number: None

PATIENT
  Age: 21 Year
  Sex: Male

DRUGS (1)
  1. ENBREL [Suspect]
     Active Substance: ETANERCEPT
     Indication: Psoriasis
     Dosage: OTHER FREQUENCY : N/A;?
     Route: 058
     Dates: start: 202301

REACTIONS (3)
  - Renal stone removal [None]
  - Stent placement [None]
  - Stent removal [None]

NARRATIVE: CASE EVENT DATE: 20230327
